FAERS Safety Report 5100507-8 (Version None)
Quarter: 2006Q3

REPORT INFORMATION
  Report Type: 
  Country: None (occurrence: None)
  Receive Date: 20060907
  Receipt Date: 20060907
  Transmission Date: 20061208
  Serious: Yes (Disabling)
  Sender: FDA-Public Use
  Company Number: None

PATIENT
  Sex: Male
  Weight: 75.2971 kg

DRUGS (1)
  1. PRILOSEC [Suspect]
     Indication: REFLUX OESOPHAGITIS
     Dosage: 20 MG QD [CONTINUOUS SEVERAL YEARS]

REACTIONS (1)
  - PITTING OEDEMA [None]
